FAERS Safety Report 5145771-4 (Version None)
Quarter: 2006Q4

REPORT INFORMATION
  Report Type: 
  Country: None (occurrence: None)
  Receive Date: 20061107
  Receipt Date: 20061012
  Transmission Date: 20070319
  Serious: Yes (Hospitalization)
  Sender: FDA-Public Use
  Company Number: FR-ABBOTT-06P-056-0346879-00

PATIENT
  Sex: Female

DRUGS (7)
  1. DEPAKOTE [Suspect]
     Indication: DRUG EXPOSURE DURING PREGNANCY
     Route: 065
  2. ZOLPIDEM TARTRATE [Suspect]
     Indication: DRUG EXPOSURE DURING PREGNANCY
     Route: 065
  3. CHLORPROMAZINE HYDROCHLORIDE [Suspect]
     Indication: DRUG EXPOSURE DURING PREGNANCY
     Route: 065
  4. CLOMIPRAMINE HYDROCHLORIDE [Suspect]
     Indication: DRUG EXPOSURE DURING PREGNANCY
     Route: 065
  5. ALPRAZOLAM [Suspect]
     Indication: DRUG EXPOSURE DURING PREGNANCY
     Route: 065
  6. CITALOPRAM HYDROBROMIDE [Concomitant]
     Indication: DRUG EXPOSURE DURING PREGNANCY
     Route: 065
  7. NOCTRAN [Concomitant]
     Indication: DRUG EXPOSURE DURING PREGNANCY
     Route: 065

REACTIONS (7)
  - AGITATION [None]
  - DRUG WITHDRAWAL SYNDROME NEONATAL [None]
  - NEONATAL RESPIRATORY DISTRESS SYNDROME [None]
  - OXYGEN SATURATION DECREASED [None]
  - PLACENTA PRAEVIA [None]
  - PREMATURE BABY [None]
  - REGURGITATION OF FOOD [None]
